FAERS Safety Report 8940782 (Version 2)
Quarter: 2013Q1

REPORT INFORMATION
  Report Type: Spontaneous
  Country: JP (occurrence: JP)
  Receive Date: 20121203
  Receipt Date: 20130109
  Transmission Date: 20140127
  Serious: Yes (Hospitalization, Other)
  Sender: FDA-Public Use
  Company Number: JP-WATSON-2012-20917

PATIENT
  Age: 58 Year
  Sex: Female

DRUGS (6)
  1. ISONIAZID [Suspect]
     Indication: TUBERCULOSIS
     Dosage: 200 MG INCREASED TO 300MG
     Route: 065
     Dates: start: 20081209
  2. RIFAMPICIN [Suspect]
     Indication: PULMONARY TUBERCULOSIS
     Dosage: 300 MG,INCREASED TO 450 MG
     Route: 065
     Dates: start: 20081209
  3. PYRAZINAMIDE [Concomitant]
     Indication: PULMONARY TUBERCULOSIS
     Route: 065
  4. ETHAMBUTOL                         /00022302/ [Concomitant]
     Indication: PULMONARY TUBERCULOSIS
     Dosage: 500 MG, UNK
     Route: 065
  5. STREPTOMYCIN [Concomitant]
     Indication: PULMONARY TUBERCULOSIS
     Route: 065
  6. BETAMETHASONE [Concomitant]
     Indication: DERMATOMYOSITIS
     Dosage: 6 MG, UNK
     Route: 065

REACTIONS (6)
  - Stevens-Johnson syndrome [Recovered/Resolved]
  - Toxic epidermal necrolysis [Recovered/Resolved]
  - Heart rate increased [None]
  - Diabetes mellitus inadequate control [None]
  - Hepatic enzyme increased [None]
  - Hepatic enzyme increased [None]
